FAERS Safety Report 10681958 (Version 1)
Quarter: 2014Q4

REPORT INFORMATION
  Report Type: Spontaneous
  Country: US (occurrence: US)
  Receive Date: 20141230
  Receipt Date: 20141230
  Transmission Date: 20150529
  Serious: Yes (Death)
  Sender: FDA-Public Use
  Company Number: US-AMGEN-USASP2014101438

PATIENT
  Age: 89 Year
  Sex: Female

DRUGS (1)
  1. NPLATE [Suspect]
     Active Substance: ROMIPLOSTIM
     Indication: THROMBOCYTOPENIA
     Dosage: 0.5 ML (250 MCG), QWK
     Route: 058
     Dates: start: 201211

REACTIONS (1)
  - Death [Fatal]

NARRATIVE: CASE EVENT DATE: 20141218
